FAERS Safety Report 22066098 (Version 1)
Quarter: 2023Q1

REPORT INFORMATION
  Report Type: Spontaneous
  Country: US (occurrence: None)
  Receive Date: 20230306
  Receipt Date: 20230306
  Transmission Date: 20230418
  Serious: Yes (Hospitalization, Other)
  Sender: FDA-Public Use
  Company Number: None

PATIENT
  Age: 35 Year
  Sex: Female
  Weight: 68.95 kg

DRUGS (2)
  1. KYLEENA [Suspect]
     Active Substance: LEVONORGESTREL
     Dates: start: 20210406, end: 20230306
  2. PREDNISONE [Suspect]
     Active Substance: PREDNISONE

REACTIONS (6)
  - Sudden hearing loss [None]
  - Deafness unilateral [None]
  - Blood pressure decreased [None]
  - Heart rate decreased [None]
  - SARS-CoV-2 test positive [None]
  - Tinnitus [None]

NARRATIVE: CASE EVENT DATE: 20211109
